FAERS Safety Report 4849653-4 (Version None)
Quarter: 2005Q4

REPORT INFORMATION
  Report Type: 
  Country: None (occurrence: None)
  Receive Date: 20051207
  Receipt Date: 20051129
  Transmission Date: 20060501
  Serious: Yes (Hospitalization)
  Sender: FDA-Public Use
  Company Number: 2005-11-1379

PATIENT
  Age: 39 Year
  Sex: Female

DRUGS (2)
  1. PEG-INTERFERON ALFA-2B REDIPEN [Suspect]
     Indication: HEPATITIS C
     Dosage: 96 MCG QWK SUBCUTANEOUS
     Route: 058
     Dates: start: 20041214, end: 20051114
  2. RIBAVIRIN [Suspect]
     Indication: HEPATITIS C
     Dosage: 1000 MG QD ORAL
     Route: 048
     Dates: start: 20041214, end: 20051114

REACTIONS (3)
  - ADJUSTMENT DISORDER WITH MIXED DISTURBANCE OF EMOTION AND CONDUCT [None]
  - HOMICIDAL IDEATION [None]
  - PERSONALITY DISORDER [None]
